FAERS Safety Report 8129763-9 (Version None)
Quarter: 2011Q4

REPORT INFORMATION
  Report Type: 
  Country: None (occurrence: None)
  Receive Date: 20111227
  Receipt Date: 20111031
  Transmission Date: 20120403
  Serious: No
  Sender: FDA-Public Use
  Company Number: PHEH2011US08492

PATIENT
  Age: 50 Year
  Sex: Female
  Weight: 61.2 kg

DRUGS (1)
  1. GILENYA [Suspect]
     Dosage: 0.5 MG, QD, ORAL
     Route: 048
     Dates: start: 20111026

REACTIONS (2)
  - SOMNOLENCE [None]
  - FATIGUE [None]
